FAERS Safety Report 11230530 (Version 1)
Quarter: 2015Q3

REPORT INFORMATION
  Report Type: Spontaneous
  Country: UA (occurrence: UA)
  Receive Date: 20150701
  Receipt Date: 20150701
  Transmission Date: 20151125
  Serious: Yes (Death)
  Sender: FDA-Public Use
  Company Number: UA-SA-2015SA091719

PATIENT
  Age: 16 Day
  Sex: Male

DRUGS (2)
  1. BCG VACCINE [Suspect]
     Active Substance: BCG VACCINE
     Indication: IMMUNISATION
     Route: 030
     Dates: start: 20140303, end: 20140303
  2. EUVAX B [Suspect]
     Active Substance: HEPATITIS B VIRUS VACCINE
     Indication: IMMUNISATION
     Route: 030
     Dates: start: 20140303, end: 20140303

REACTIONS (2)
  - Death neonatal [Fatal]
  - Sudden death [None]
